FAERS Safety Report 6722770-X (Version None)
Quarter: 2010Q2

REPORT INFORMATION
  Report Type: 
  Country: None (occurrence: None)
  Receive Date: 20100511
  Receipt Date: 20050802
  Transmission Date: 20101027
  Serious: Yes (Hospitalization, Other)
  Sender: FDA-Public Use
  Company Number: 2009-2999

PATIENT
  Age: 63 Year
  Sex: Female

DRUGS (12)
  1. APO-GO AMPOULES (APO-GO) (APOMORPHINE HYDROCHLORIDE) [Suspect]
     Indication: PARKINSON'S DISEASE
     Dosage: 40 MG (2 MG,1 IN 1 HR),SUBCUTANEOUS
     Route: 058
     Dates: start: 20040901
  2. PERGOLIDE (PERGOLIDE) (PERGOLIDE) [Concomitant]
  3. CO-BENELDOPA (MADOPAR /00349201/) (BENSERAZIDE HYDROCHLORIDE, LEVODOPA [Concomitant]
  4. AMANTADINE (AMANTADINE) (AMANTADINE HYDROCHLORIDE) [Concomitant]
  5. PHYLLOCONTIN (AMINOPHYLLINE) (AMINOPHYLLINE) [Concomitant]
  6. ATROVENT (IPRATROPIUM BROMIDE) (IPRATROPIUM BROMIDE) [Concomitant]
  7. SERETIDE (SERETIDE) (FLUTICASONE PROPIONATE, SALMETEROL) [Concomitant]
  8. AMITRIPTLINE HCL [Concomitant]
  9. TRAMADOL HCL [Concomitant]
  10. THYROXINE (LEVOTHYROXINE SODIUM) (LEVOTHYROXINE SODIUM) [Concomitant]
  11. SALBUTAMOL (SALBUTAMOL) (SALBUTAMOL) [Concomitant]
  12. DOMPERIDONE (DOMPERIDONE) (DOMPERIDONE) [Concomitant]

REACTIONS (2)
  - ASTHMA [None]
  - CONDITION AGGRAVATED [None]
